FAERS Safety Report 10562287 (Version 8)
Quarter: 2015Q1

REPORT INFORMATION
  Report Type: Report from Study
  Country: CA (occurrence: CA)
  Receive Date: 20141104
  Receipt Date: 20150327
  Transmission Date: 20150720
  Serious: Yes (Other)
  Sender: FDA-Public Use
  Company Number: CA-ROCHE-1411973

PATIENT
  Age: 62 Year
  Sex: Female
  Weight: 72.64 kg

DRUGS (13)
  1. RITUXAN [Suspect]
     Active Substance: RITUXIMAB
     Indication: RHEUMATOID ARTHRITIS
     Route: 042
     Dates: start: 20140530, end: 20140617
  2. METFORMIN [Concomitant]
     Active Substance: METFORMIN HYDROCHLORIDE
  3. NIFEDIPINE XL [Concomitant]
     Active Substance: NIFEDIPINE
  4. TYLENOL [Concomitant]
     Active Substance: ACETAMINOPHEN
  5. CO ATORVASTATIN [Concomitant]
  6. DIPHENHYDRAMINE HCL [Concomitant]
     Active Substance: DIPHENHYDRAMINE HYDROCHLORIDE
     Indication: PREMEDICATION
     Route: 048
     Dates: start: 20140530, end: 20140617
  7. METHYLPREDNISOLONE. [Concomitant]
     Active Substance: METHYLPREDNISOLONE
     Indication: PREMEDICATION
     Route: 042
     Dates: start: 20140530, end: 20140617
  8. IRBESARTAN. [Concomitant]
     Active Substance: IRBESARTAN
  9. ACTEMRA [Suspect]
     Active Substance: TOCILIZUMAB
     Indication: RHEUMATOID ARTHRITIS
     Route: 042
     Dates: start: 20141119, end: 20150225
  10. ASPIRIN. [Concomitant]
     Active Substance: ASPIRIN
  11. INSULIN [Concomitant]
     Active Substance: INSULIN NOS
  12. ZOPICLONE [Concomitant]
     Active Substance: ZOPICLONE
  13. ACETAMINOPHEN. [Concomitant]
     Active Substance: ACETAMINOPHEN
     Indication: PREMEDICATION
     Route: 048
     Dates: start: 20140530, end: 20140617

REACTIONS (11)
  - Drug ineffective [Unknown]
  - Peripheral swelling [Unknown]
  - Weight increased [Unknown]
  - Road traffic accident [Unknown]
  - Poor venous access [Unknown]
  - Arthralgia [Unknown]
  - Cystitis [Unknown]
  - Dehydration [Unknown]
  - Infusion related reaction [Unknown]
  - Infusion related reaction [Unknown]
  - Stress [Unknown]

NARRATIVE: CASE EVENT DATE: 20141223
